FAERS Safety Report 8830024 (Version 1)
Quarter: 2012Q4

REPORT INFORMATION
  Report Type: Spontaneous
  Country: US (occurrence: None)
  Receive Date: 20121004
  Receipt Date: 20121004
  Transmission Date: 20130627
  Serious: Yes (Hospitalization)
  Sender: FDA-Public Use
  Company Number: TPA2012A07456

PATIENT
  Sex: Male

DRUGS (1)
  1. EDARBYCLOR [Suspect]
     Indication: HYPERTENSION
     Dosage: 1 in 1 D, per oral
     Route: 048
     Dates: start: 201209, end: 201209

REACTIONS (2)
  - Blood pressure systolic increased [None]
  - Drug ineffective [None]
